FAERS Safety Report 4952487-3 (Version None)
Quarter: 2006Q1

REPORT INFORMATION
  Report Type: 
  Country: None (occurrence: None)
  Receive Date: 20060323
  Receipt Date: 20060314
  Transmission Date: 20060701
  Serious: Yes (Hospitalization)
  Sender: FDA-Public Use
  Company Number: US-MERCK-0603USA03197

PATIENT
  Age: 61 Year
  Sex: Female
  Weight: 55 kg

DRUGS (2)
  1. VIOXX [Suspect]
     Indication: CARPAL TUNNEL SYNDROME
     Route: 048
     Dates: start: 20010101, end: 20021002
  2. VICODIN ES [Concomitant]
     Indication: CARPAL TUNNEL SYNDROME
     Route: 065

REACTIONS (30)
  - ANAEMIA [None]
  - ANOREXIA [None]
  - ANXIETY [None]
  - AORTIC VALVE INCOMPETENCE [None]
  - APHASIA [None]
  - CAROTID ARTERY DISEASE [None]
  - CEREBRAL INFARCTION [None]
  - CHRONIC OBSTRUCTIVE PULMONARY DISEASE [None]
  - CONSTIPATION [None]
  - CORONARY ARTERY DISEASE [None]
  - DEHYDRATION [None]
  - DEPRESSIVE SYMPTOM [None]
  - DIARRHOEA [None]
  - DISLOCATION OF JOINT PROSTHESIS [None]
  - FATIGUE [None]
  - GASTRITIS [None]
  - HAEMORRHOIDS [None]
  - HEMIPLEGIA [None]
  - HUMERUS FRACTURE [None]
  - HYPERCHOLESTEROLAEMIA [None]
  - HYPERHIDROSIS [None]
  - HYPERTENSION [None]
  - HYPONATRAEMIA [None]
  - INCREASED TENDENCY TO BRUISE [None]
  - JOINT DISLOCATION [None]
  - MONARTHRITIS [None]
  - PAIN IN EXTREMITY [None]
  - PANIC DISORDER [None]
  - THYROID DISORDER [None]
  - URINARY TRACT INFECTION [None]
